FAERS Safety Report 8178724-2 (Version None)
Quarter: 2012Q1

REPORT INFORMATION
  Report Type: 
  Country: None (occurrence: None)
  Receive Date: 20120301
  Receipt Date: 20120301
  Transmission Date: 20120608
  Serious: Yes (Other)
  Sender: FDA-Public Use
  Company Number: None

PATIENT
  Age: 36 Year
  Sex: Female

DRUGS (7)
  1. AMBIEN [Suspect]
     Indication: INSOMNIA
     Dosage: 10 MG
     Route: 048
  2. PREMARIN [Concomitant]
  3. MEDROXYPROGESTERONE [Concomitant]
  4. VITAMIN D [Concomitant]
     Dosage: 50,000 INTERNATIONAL UNITS
     Route: 048
  5. LEVOTHYROXINE SODIUM [Concomitant]
     Route: 048
  6. HYDROCORTISONE [Concomitant]
  7. ACIPHEX [Concomitant]

REACTIONS (1)
  - AMNESIA [None]
